FAERS Safety Report 6759563-3 (Version None)
Quarter: 2010Q2

REPORT INFORMATION
  Report Type: 
  Country: None (occurrence: None)
  Receive Date: 20100607
  Receipt Date: 20100527
  Transmission Date: 20101027
  Serious: Yes (Life-Threatening)
  Sender: FDA-Public Use
  Company Number: JP-BRISTOL-MYERS SQUIBB COMPANY-15133853

PATIENT
  Age: 89 Year
  Sex: Female

DRUGS (2)
  1. AVAPRO [Suspect]
     Indication: HYPERTENSION
     Route: 048
     Dates: start: 20100508, end: 20100509
  2. ROCEPHIN [Concomitant]
     Indication: URINARY TRACT INFECTION
     Dosage: 1DF=1BAG
     Dates: start: 20100508, end: 20100509

REACTIONS (1)
  - RENAL FAILURE ACUTE [None]
